FAERS Safety Report 23911264 (Version 1)
Quarter: 2024Q2

REPORT INFORMATION
  Report Type: Spontaneous
  Country: CN (occurrence: CN)
  Receive Date: 20240528
  Receipt Date: 20240528
  Transmission Date: 20240716
  Serious: Yes (Other)
  Sender: FDA-Public Use
  Company Number: CN-ORGANON-O2405CHN002245

PATIENT
  Age: 71 Year
  Sex: Female
  Weight: 35 kg

DRUGS (2)
  1. DIPROSPAN [Suspect]
     Active Substance: BETAMETHASONE DIPROPIONATE\BETAMETHASONE SODIUM PHOSPHATE
     Indication: Rheumatoid arthritis
     Dosage: 5 MG, ONCE, IM
     Route: 030
     Dates: start: 20240508, end: 20240508
  2. DIPROSPAN [Suspect]
     Active Substance: BETAMETHASONE DIPROPIONATE\BETAMETHASONE SODIUM PHOSPHATE
     Indication: Antiinflammatory therapy

REACTIONS (5)
  - Central nervous system stimulation [Recovering/Resolving]
  - Initial insomnia [Recovering/Resolving]
  - Agitation [Recovering/Resolving]
  - Speech disorder [Recovering/Resolving]
  - Psychomotor hyperactivity [Recovering/Resolving]

NARRATIVE: CASE EVENT DATE: 20240508
